FAERS Safety Report 16739471 (Version 1)
Quarter: 2019Q3

REPORT INFORMATION
  Report Type: Other
  Country: HR (occurrence: HR)
  Receive Date: 20190826
  Receipt Date: 20190826
  Transmission Date: 20191005
  Serious: Yes (Other)
  Sender: FDA-Public Use
  Company Number: HR-ORCHID HEALTHCARE-2073649

PATIENT
  Age: 57 Year
  Sex: Male

DRUGS (3)
  1. PERINDOPRIL [Suspect]
     Active Substance: PERINDOPRIL
     Route: 065
  2. AMLODIPINE BESYLATE. [Suspect]
     Active Substance: AMLODIPINE BESYLATE
     Route: 065
  3. MOXONIDINE [Suspect]
     Active Substance: MOXONIDINE
     Route: 065

REACTIONS (2)
  - Linear IgA disease [Recovered/Resolved]
  - Acquired haemophilia [Recovered/Resolved]
